FAERS Safety Report 9845385 (Version 1)
Quarter: 2014Q1

REPORT INFORMATION
  Report Type: Spontaneous
  Country: US (occurrence: None)
  Receive Date: 20140123
  Receipt Date: 20140123
  Transmission Date: 20141002
  Serious: Yes (Hospitalization, Other)
  Sender: FDA-Public Use
  Company Number: 2014US0010

PATIENT
  Age: 63 Year
  Sex: Male

DRUGS (4)
  1. KINERET [Suspect]
     Indication: ARTHRITIS
     Dosage: 100 MG, 1 IN 1 D, SUBCUTANEOUS
     Route: 058
  2. AZOR (ALPRAZOLAM) (ALPRAZOLAM) [Concomitant]
  3. CLONIDINE (CLONIDINE) (CLONIDINE) [Concomitant]
  4. TOPROL XL (METOPROLOL SUCCINATE) (METOPROLOL SUCCINATE) [Concomitant]

REACTIONS (2)
  - Abdominal pain [None]
  - Renal failure [None]
